FAERS Safety Report 6739875-X (Version None)
Quarter: 2010Q2

REPORT INFORMATION
  Report Type: 
  Country: None (occurrence: None)
  Receive Date: 20100521
  Receipt Date: 20100512
  Transmission Date: 20101027
  Serious: Yes (Hospitalization)
  Sender: FDA-Public Use
  Company Number: 011267

PATIENT
  Sex: Female
  Weight: 75 kg

DRUGS (10)
  1. CERTOLIZUMAB PEGOL (CERTOLIZUMAB PEGOL) [Suspect]
     Indication: RHEUMATOID ARTHRITIS
     Dosage: (200 MG 1X/2 WEEKS SUBCUTANEOUS)
     Route: 058
     Dates: start: 20100319, end: 20100426
  2. TREXAN /00113801/ [Concomitant]
  3. METYPRED /00049601/ [Concomitant]
  4. HYDROCORTISONE [Concomitant]
  5. ACIDUM FOLICUM [Concomitant]
  6. CONCOR /00802601/ [Concomitant]
  7. SIMVACOL [Concomitant]
  8. CONTROLOC /01263201/ [Concomitant]
  9. CALPEROS /00108001/ [Concomitant]
  10. ACARD [Concomitant]

REACTIONS (3)
  - BRONCHITIS [None]
  - DYSPNOEA [None]
  - UPPER RESPIRATORY TRACT INFECTION [None]
